FAERS Safety Report 12958964 (Version 1)
Quarter: 2016Q4

REPORT INFORMATION
  Report Type: Spontaneous
  Country: US (occurrence: US)
  Receive Date: 20161117
  Receipt Date: 20161117
  Transmission Date: 20170207
  Serious: Yes (Hospitalization)
  Sender: FDA-Public Use
  Company Number: None

PATIENT
  Age: 79 Year
  Sex: Male

DRUGS (6)
  1. GABAPENTIN. [Concomitant]
     Active Substance: GABAPENTIN
  2. MULTIVITAMIN [Concomitant]
     Active Substance: VITAMINS
  3. WARFARIN [Suspect]
     Active Substance: WARFARIN
     Indication: ATRIAL FIBRILLATION
     Route: 048
     Dates: end: 20160812
  4. ATORVASTATIN [Concomitant]
     Active Substance: ATORVASTATIN
  5. ASPIRIN. [Concomitant]
     Active Substance: ASPIRIN
  6. COENZYME Q10 [Concomitant]
     Active Substance: UBIDECARENONE

REACTIONS (1)
  - Cerebellar haemorrhage [None]

NARRATIVE: CASE EVENT DATE: 20160812
